FAERS Safety Report 17001349 (Version 18)
Quarter: 2020Q3

REPORT INFORMATION
  Report Type: Spontaneous
  Country: US (occurrence: US)
  Receive Date: 20191106
  Receipt Date: 20200824
  Transmission Date: 20201102
  Serious: Yes (Death, Hospitalization)
  Sender: FDA-Public Use
  Company Number: US-ACTELION-A-NJ2019-197728

PATIENT
  Age: 41 Year
  Sex: Male
  Weight: 79.37 kg

DRUGS (6)
  1. OPSUMIT [Suspect]
     Active Substance: MACITENTAN
     Indication: PULMONARY HYPERTENSION
     Dosage: UNK
     Route: 048
  2. VELETRI [Suspect]
     Active Substance: EPOPROSTENOL
     Indication: PULMONARY HYPERTENSION
     Dosage: 35 NG/KG, PER MIN
     Route: 042
  3. ELIQUIS [Concomitant]
     Active Substance: APIXABAN
  4. ORENITRAM [Concomitant]
     Active Substance: TREPROSTINIL
  5. VELETRI [Suspect]
     Active Substance: EPOPROSTENOL
     Dosage: UNK
     Route: 042
  6. VELETRI [Suspect]
     Active Substance: EPOPROSTENOL
     Dosage: 28 NG/KG, PER MIN
     Route: 042

REACTIONS (25)
  - Fatigue [Unknown]
  - Dyspnoea exertional [Unknown]
  - Pericardial effusion [Unknown]
  - Abdominal distension [Unknown]
  - Death [Fatal]
  - Condition aggravated [Unknown]
  - Respiratory rate decreased [Unknown]
  - Hospitalisation [Unknown]
  - Unevaluable event [Unknown]
  - Transfusion [Unknown]
  - Overdose [Unknown]
  - Therapy change [Unknown]
  - Abdominal pain [Unknown]
  - Sickle cell anaemia with crisis [Unknown]
  - Haemoglobin decreased [Unknown]
  - Fluid retention [Unknown]
  - Vomiting [Unknown]
  - Weight increased [Unknown]
  - Dose calculation error [Recovered/Resolved]
  - Device malfunction [Unknown]
  - Epistaxis [Unknown]
  - Dyspnoea [Unknown]
  - Device leakage [Unknown]
  - Nausea [Recovered/Resolved]
  - Decreased appetite [Unknown]

NARRATIVE: CASE EVENT DATE: 20200817
